FAERS Safety Report 5016449-2 (Version None)
Quarter: 2006Q2

REPORT INFORMATION
  Report Type: 
  Country: None (occurrence: None)
  Receive Date: 20060531
  Receipt Date: 20060531
  Transmission Date: 20061013
  Serious: No
  Sender: FDA-Public Use
  Company Number: None

PATIENT
  Age: 60 Year
  Sex: Female
  Weight: 58.9676 kg

DRUGS (2)
  1. LEVAQUIN [Suspect]
     Indication: PNEUMONIA
     Dosage: ONE TABLET ONCE A DAY
     Dates: start: 20041022, end: 20041031
  2. NSAIDS [Concomitant]

REACTIONS (7)
  - AGEUSIA [None]
  - DEAFNESS [None]
  - DEPRESSION [None]
  - INSOMNIA [None]
  - PSYCHOTIC DISORDER [None]
  - TENDON DISORDER [None]
  - TINNITUS [None]
